FAERS Safety Report 7893844-5 (Version None)
Quarter: 2011Q4

REPORT INFORMATION
  Report Type: 
  Country: None (occurrence: None)
  Receive Date: 20111104
  Receipt Date: 20111021
  Transmission Date: 20120403
  Serious: Yes (Other)
  Sender: FDA-Public Use
  Company Number: PHHY2011JP86451

PATIENT
  Age: 72 Year
  Sex: Female

DRUGS (3)
  1. CYCLOSPORINE [Suspect]
     Indication: PSORIASIS
     Dosage: UNK UKN, UNK
  2. ADALIMUMAB [Suspect]
     Indication: PSORIASIS
     Dosage: UNK UKN, UNK
     Route: 058
  3. INFLIXIMAB [Suspect]
     Dosage: UNK UKN, UNK
     Dates: start: 20100801

REACTIONS (5)
  - PYREXIA [None]
  - DYSPNOEA [None]
  - COUGH [None]
  - RASH [None]
  - INTERSTITIAL LUNG DISEASE [None]
